FAERS Safety Report 18599433 (Version 2)
Quarter: 2021Q1

REPORT INFORMATION
  Report Type: Spontaneous
  Country: BE (occurrence: BE)
  Receive Date: 20201210
  Receipt Date: 20210315
  Transmission Date: 20210419
  Serious: Yes (Hospitalization, Other)
  Sender: FDA-Public Use
  Company Number: BE-BRISTOL-MYERS SQUIBB COMPANY-BMS-2020-104953

PATIENT
  Age: 76 Year
  Sex: Female

DRUGS (1)
  1. ORENCIA [Suspect]
     Active Substance: ABATACEPT
     Indication: RHEUMATOID ARTHRITIS
     Dosage: UNK
     Route: 042
     Dates: start: 2009

REACTIONS (5)
  - International normalised ratio abnormal [Unknown]
  - Petechiae [Unknown]
  - Oedema peripheral [Unknown]
  - Proteinuria [Unknown]
  - Vasculitis [Unknown]

NARRATIVE: CASE EVENT DATE: 20201207
